FAERS Safety Report 5387408-5 (Version None)
Quarter: 2007Q3

REPORT INFORMATION
  Report Type: 
  Country: None (occurrence: None)
  Receive Date: 20070716
  Receipt Date: 20070712
  Transmission Date: 20080115
  Serious: Yes (Hospitalization, Other)
  Sender: FDA-Public Use
  Company Number: FR-BRISTOL-MYERS SQUIBB COMPANY-13695663

PATIENT
  Age: 58 Year
  Sex: Female

DRUGS (4)
  1. DASATINIB [Suspect]
     Indication: CHRONIC MYELOID LEUKAEMIA
     Route: 048
     Dates: start: 20060918
  2. IMATINIB MESYLATE [Suspect]
     Indication: CHRONIC MYELOID LEUKAEMIA
     Route: 048
     Dates: start: 20050525, end: 20060910
  3. GLUCOPHAGE [Concomitant]
     Dates: start: 20010101
  4. LEVOTHYROXINE SODIUM [Concomitant]
     Dates: start: 19910101

REACTIONS (1)
  - OSTEONECROSIS [None]
